FAERS Safety Report 17624377 (Version 1)
Quarter: 2020Q2

REPORT INFORMATION
  Report Type: Spontaneous
  Country: US (occurrence: US)
  Receive Date: 20200403
  Receipt Date: 20200403
  Transmission Date: 20200713
  Serious: Yes (Death, Hospitalization, Other)
  Sender: FDA-Public Use
  Company Number: US-SA-2020SA081469

PATIENT
  Age: 24 Year
  Sex: Female

DRUGS (7)
  1. LIDOCAINE. [Suspect]
     Active Substance: LIDOCAINE
  2. BENZOYLECGONINE [Suspect]
     Active Substance: BENZOYLECGONINE
  3. COCAINE [Suspect]
     Active Substance: COCAINE
  4. LEVAMISOLE [Suspect]
     Active Substance: LEVAMISOLE
  5. PHENACETIN [Suspect]
     Active Substance: PHENACETIN
  6. BENZOCAINE. [Suspect]
     Active Substance: BENZOCAINE
  7. ALCOHOL. [Concomitant]
     Active Substance: ALCOHOL

REACTIONS (8)
  - Arrhythmia [Fatal]
  - Rhabdomyolysis [Fatal]
  - Cardiac arrest [Recovered/Resolved]
  - Toxicity to various agents [Fatal]
  - Acidosis [Recovered/Resolved]
  - Methaemoglobinaemia [Fatal]
  - Hyperthermia [Fatal]
  - Hypotension [Fatal]
